FAERS Safety Report 4932930-6 (Version None)
Quarter: 2006Q1

REPORT INFORMATION
  Report Type: 
  Country: None (occurrence: None)
  Receive Date: 20060301
  Receipt Date: 20060301
  Transmission Date: 20060701
  Serious: No
  Sender: FDA-Public Use
  Company Number: None

PATIENT
  Age: 52 Year
  Sex: Male
  Weight: 81.6475 kg

DRUGS (2)
  1. VYTORIN [Suspect]
     Indication: BLOOD CHOLESTEROL INCREASED
     Dosage: ONE DAILY PO
     Route: 048
     Dates: start: 20051110, end: 20060210
  2. ZOCOR [Suspect]
     Dosage: ONE DAILY OROPHARINGEAL
     Route: 049
     Dates: start: 20060210, end: 20060228

REACTIONS (1)
  - SKIN ODOUR ABNORMAL [None]
